FAERS Safety Report 8793857 (Version 1)
Quarter: 2012Q4

REPORT INFORMATION
  Report Type: 
  Country: GB (occurrence: GB)
  Receive Date: 20120918
  Receipt Date: 20120918
  Transmission Date: 20130627
  Serious: Yes (Other)
  Sender: FDA-Public Use
  Company Number: GB-009507513-1209GBR006414

PATIENT

DRUGS (1)
  1. JANUVIA [Suspect]
     Route: 050

REACTIONS (4)
  - Gastrostomy tube insertion [Unknown]
  - Neoplasm [Unknown]
  - Wrong technique in drug usage process [Unknown]
  - Incorrect route of drug administration [Unknown]
